FAERS Safety Report 7001047-1 (Version None)
Quarter: 2010Q3

REPORT INFORMATION
  Report Type: 
  Country: None (occurrence: None)
  Receive Date: 20100920
  Receipt Date: 20070608
  Transmission Date: 20110219
  Serious: Yes (Other)
  Sender: FDA-Public Use
  Company Number: US-ASTRAZENECA-2006UW12246

PATIENT
  Age: 13750 Day
  Sex: Male
  Weight: 117.9 kg

DRUGS (8)
  1. SEROQUEL [Suspect]
     Indication: CONVULSION
     Dosage: STRNGTH 100MG, 200MG DOSE 100MG-500MG DAILY
     Route: 048
     Dates: start: 20031020
  2. ZYPREXA [Suspect]
     Indication: PSYCHOTIC DISORDER
     Dosage: STRENGTH 10MG, 15MG
     Dates: start: 20000803
  3. HALDOL [Concomitant]
  4. RISPERDAL [Concomitant]
  5. THORAZINE [Concomitant]
  6. DEPAKOTE [Concomitant]
     Indication: CONVULSION
     Dosage: STRENGTH 250MG, 500MG DOSE 250 MG-1000MG DAILY
     Route: 048
     Dates: start: 20030317
  7. ZOLOFT [Concomitant]
     Dosage: STRENGTH 50MG, 100MG DOSE 50MG-200 MG DAILY
     Route: 048
     Dates: start: 20020308
  8. HYDROCODONE BITARTRATE AND ACETAMINOPHEN [Concomitant]
     Dosage: STRENGTH 5/500
     Dates: start: 20041202

REACTIONS (2)
  - DIABETES MELLITUS [None]
  - DIABETES MELLITUS INADEQUATE CONTROL [None]
